FAERS Safety Report 5107704-6 (Version None)
Quarter: 2006Q3

REPORT INFORMATION
  Report Type: 
  Country: None (occurrence: None)
  Receive Date: 20060914
  Receipt Date: 20060904
  Transmission Date: 20061208
  Serious: Yes (Death, Life-Threatening)
  Sender: FDA-Public Use
  Company Number: B0437527A

PATIENT
  Age: 63 Year
  Sex: Female

DRUGS (1)
  1. LANOXIN [Suspect]

REACTIONS (11)
  - ACIDOSIS [None]
  - CHRONIC OBSTRUCTIVE PULMONARY DISEASE [None]
  - CHRONIC RESPIRATORY FAILURE [None]
  - CONDITION AGGRAVATED [None]
  - DIFFICULT TO WEAN FROM VENTILATOR [None]
  - HAEMODIALYSIS [None]
  - NODAL ARRHYTHMIA [None]
  - SEPTIC SHOCK [None]
  - THERAPEUTIC AGENT TOXICITY [None]
  - THERAPY NON-RESPONDER [None]
  - VENTRICULAR FIBRILLATION [None]
